FAERS Safety Report 8504075-X (Version None)
Quarter: 2012Q3

REPORT INFORMATION
  Report Type: 
  Country: None (occurrence: None)
  Receive Date: 20120711
  Receipt Date: 20120702
  Transmission Date: 20120928
  Serious: Yes (Other)
  Sender: FDA-Public Use
  Company Number: PHHY2012BR036170

PATIENT
  Age: 84 Year
  Sex: Male
  Weight: 91 kg

DRUGS (11)
  1. FORMOTEROL FUMARATE [Suspect]
     Dosage: 1 DF, QD
     Dates: start: 20060101
  2. LOSARTAN POTASSIUM [Concomitant]
     Dosage: 1 DF, DAILY
     Route: 048
     Dates: start: 20080101
  3. DIOVAN [Suspect]
     Indication: BLOOD PRESSURE ABNORMAL
     Dosage: 25 MG, DAILY
     Dates: start: 20030101, end: 20080101
  4. DIOVAN [Suspect]
     Indication: CARDIAC DISORDER
  5. FUROSEMIDE [Concomitant]
     Dosage: 1 DF, DAILY
     Route: 048
     Dates: start: 20060101
  6. SIMVASTATIN [Concomitant]
     Dosage: 1 DF, DAILY
     Route: 048
     Dates: start: 20060101
  7. SPIRONOLACTONE [Concomitant]
     Dosage: 1 DF, DAILY
     Route: 048
     Dates: start: 20060101
  8. FORMOTEROL FUMARATE [Suspect]
     Dosage: 2 DF, BID
     Dates: start: 20060101
  9. OMEPRAZOLE [Concomitant]
     Dosage: 1 DF, DAILY
     Route: 048
     Dates: start: 20060101
  10. CONCOR [Concomitant]
     Dosage: 1 DF, DAILY
     Route: 048
     Dates: start: 20090101
  11. VASTAREL [Concomitant]
     Dosage: 1 DF, DAILY
     Route: 048
     Dates: start: 20090101

REACTIONS (7)
  - CARDIAC FAILURE [None]
  - COLON CANCER [None]
  - OBSTRUCTIVE AIRWAYS DISORDER [None]
  - WRONG TECHNIQUE IN DRUG USAGE PROCESS [None]
  - CHRONIC OBSTRUCTIVE PULMONARY DISEASE [None]
  - NEOPLASM MALIGNANT [None]
  - HYPERTENSION [None]
